FAERS Safety Report 4806510-7 (Version None)
Quarter: 2005Q4

REPORT INFORMATION
  Report Type: 
  Country: None (occurrence: None)
  Receive Date: 20051019
  Receipt Date: 20051006
  Transmission Date: 20060501
  Serious: Yes (Other)
  Sender: FDA-Public Use
  Company Number: 2005140183

PATIENT
  Sex: Female

DRUGS (2)
  1. PROVERA [Suspect]
     Indication: HORMONE REPLACEMENT THERAPY
     Dates: start: 19850101, end: 19940101
  2. PREMPRO [Suspect]
     Dates: start: 19940101, end: 20020101

REACTIONS (2)
  - BREAST CANCER [None]
  - REFUSAL OF TREATMENT BY PATIENT [None]
